FAERS Safety Report 7531249-7 (Version None)
Quarter: 2011Q2

REPORT INFORMATION
  Report Type: 
  Country: None (occurrence: None)
  Receive Date: 20110608
  Receipt Date: 20110601
  Transmission Date: 20111010
  Serious: Yes (Hospitalization)
  Sender: FDA-Public Use
  Company Number: US-SANOFI-AVENTIS-2011SA034370

PATIENT
  Age: 61 Year
  Sex: Male
  Weight: 95.3 kg

DRUGS (23)
  1. METOPROLOL SUCCINATE [Concomitant]
  2. NIASPAN [Concomitant]
  3. BENICAR [Concomitant]
  4. NITROGLYCERIN [Concomitant]
  5. ALPRAZOLAM [Concomitant]
  6. TAXOTERE [Suspect]
     Indication: PROSTATE CANCER
     Dosage: 75 MG/M2 INTRAVENOUSLY (IV) ONCE PER 3 WEEKS FOR 10 CYCLES
     Route: 041
     Dates: start: 20110418, end: 20110418
  7. PLAVIX [Concomitant]
  8. ANALGESICS [Concomitant]
  9. SEROTONIN ANTAGONISTS [Concomitant]
     Indication: PREMEDICATION
  10. TAXOTERE [Suspect]
     Route: 041
     Dates: start: 20110509, end: 20110509
  11. CASODEX [Suspect]
     Indication: PROSTATE CANCER
     Dosage: 50 MG ORALLY DAILY FOR 4 WEEKS
     Route: 048
     Dates: start: 20110418, end: 20110517
  12. LOVAZA [Concomitant]
     Dosage: 4 PER DAY
  13. ASPIRIN [Concomitant]
  14. CORTICOSTEROIDS [Concomitant]
     Indication: PREMEDICATION
  15. CALCIUM/VITAMIN D [Concomitant]
  16. LASIX [Concomitant]
  17. DIGOXIN [Concomitant]
  18. ELIGARD [Suspect]
     Indication: PROSTATE CANCER
     Dosage: 22.5 MG SUBCUTANEOUSLY (SC) EVERY 3 MONTHS FOR 18 MONTHS
     Route: 058
     Dates: start: 20110418, end: 20110418
  19. LEVOTHYROXINE SODIUM [Concomitant]
  20. ATORVASTATIN [Concomitant]
  21. KLOR-CON [Concomitant]
  22. AMIODARONE HCL [Concomitant]
  23. ANTIHISTAMINES [Concomitant]
     Indication: PREMEDICATION

REACTIONS (1)
  - ATRIAL FIBRILLATION [None]
